FAERS Safety Report 14656276 (Version 1)
Quarter: 2018Q1

REPORT INFORMATION
  Report Type: Spontaneous
  Country: PT (occurrence: PT)
  Receive Date: 20180319
  Receipt Date: 20180319
  Transmission Date: 20180509
  Serious: Yes (Death)
  Sender: FDA-Public Use
  Company Number: PT-PFIZER INC-2018109556

PATIENT
  Age: 51 Year
  Sex: Male
  Weight: 60 kg

DRUGS (5)
  1. CEFTRIAXONE. [Concomitant]
     Active Substance: CEFTRIAXONE
     Dosage: 1 DF, 1X/DAY
     Route: 065
  2. LINEZOLID. [Suspect]
     Active Substance: LINEZOLID
     Indication: BRAIN ABSCESS
     Dosage: 600 MG, 2X/DAY (12/12H)
     Route: 040
     Dates: start: 20170822, end: 20170904
  3. MEROPENEM. [Concomitant]
     Active Substance: MEROPENEM
     Dosage: 1 DF, 1X/DAY
     Route: 065
  4. AMPICILLIN [Concomitant]
     Active Substance: AMPICILLIN
     Dosage: 1 DF, 1X/DAY
     Route: 065
  5. METRONIDAZOLE. [Concomitant]
     Active Substance: METRONIDAZOLE
     Dosage: 1 DF, 1X/DAY
     Route: 065

REACTIONS (8)
  - Thrombocytopenia [Fatal]
  - Condition aggravated [Fatal]
  - Anaemia [Fatal]
  - Toxicity to various agents [Fatal]
  - Bone marrow failure [Fatal]
  - Leukopenia [Fatal]
  - Hyperlactacidaemia [Fatal]
  - Renal failure [Fatal]

NARRATIVE: CASE EVENT DATE: 20170904
